FAERS Safety Report 6744668-3 (Version None)
Quarter: 2010Q2

REPORT INFORMATION
  Report Type: 
  Country: None (occurrence: None)
  Receive Date: 20100526
  Receipt Date: 20100526
  Transmission Date: 20101027
  Serious: Yes (Death)
  Sender: FDA-Public Use
  Company Number: None

PATIENT
  Age: 83 Year
  Sex: Male
  Weight: 61.4 kg

DRUGS (1)
  1. ZOLEDRONIC ACID [Suspect]
     Indication: BONE CANCER METASTATIC
     Dosage: 4 MG EVERY 4 WEEKS IV DRIP
     Route: 041
     Dates: start: 20100521, end: 20100521

REACTIONS (4)
  - CONFUSIONAL STATE [None]
  - FEELING ABNORMAL [None]
  - OSTEONECROSIS OF JAW [None]
  - RESTLESSNESS [None]
